FAERS Safety Report 20459538 (Version 1)
Quarter: 2022Q1

REPORT INFORMATION
  Report Type: Report from Study
  Country: CA (occurrence: CA)
  Receive Date: 20220211
  Receipt Date: 20220211
  Transmission Date: 20220423
  Serious: Yes (Hospitalization)
  Sender: FDA-Public Use
  Company Number: CA-JAZZ-2021-CA-015941

PATIENT
  Age: 16 Year
  Sex: Female
  Weight: 64 kg

DRUGS (11)
  1. ASPARAGINASE ERWINIA CHRYSANTHEMI [Suspect]
     Active Substance: ASPARAGINASE ERWINIA CHRYSANTHEMI
     Indication: Acute lymphocytic leukaemia
     Dosage: 39 MILLIGRAM, 3XWEEKLY PER 2W COURSE
     Route: 042
     Dates: start: 20210412, end: 20210423
  2. ASPARAGINASE ERWINIA CHRYSANTHEMI [Suspect]
     Active Substance: ASPARAGINASE ERWINIA CHRYSANTHEMI
     Dosage: 42.5 MILLIGRAM, 3XWEEKLY PER 2W COURSE
     Route: 042
     Dates: end: 20210823
  3. DEXAMETHASONE [Suspect]
     Active Substance: DEXAMETHASONE
     Dosage: 8.5 MILLIGRAM, BID
     Route: 048
     Dates: start: 20210823
  4. VINCRISTINE [Concomitant]
     Active Substance: VINCRISTINE
     Dosage: 2 MILLIGRAM, SINGLE
     Route: 042
     Dates: start: 20210823, end: 20210823
  5. DOXORUBICIN [Concomitant]
     Active Substance: DOXORUBICIN
     Dosage: 42 MILLIGRAM, SINGLE
     Route: 042
     Dates: start: 20210823, end: 20210823
  6. LORAZEPAM [Concomitant]
     Active Substance: LORAZEPAM
     Dosage: 0.5 MILLIGRAM, PRN Q8H
     Route: 048
     Dates: start: 20210325
  7. SEPTRA [Concomitant]
     Active Substance: SULFAMETHOXAZOLE\TRIMETHOPRIM
     Dosage: 15 MILLILITER, BID MON/WED/FRI
     Route: 048
     Dates: start: 20210101
  8. LANSOPRAZOLE [Concomitant]
     Active Substance: LANSOPRAZOLE
     Dosage: 15 MILLIGRAM, BID
     Route: 048
     Dates: start: 20210607
  9. MELATONIN [Concomitant]
     Active Substance: MELATONIN
     Dosage: 9 MILLIGRAM, PRN QHS
     Route: 048
     Dates: start: 20210621
  10. POLYETHYLENE GLYCOL 3350 [Concomitant]
     Active Substance: POLYETHYLENE GLYCOL 3350
     Dosage: 17 GRAM, PRN DAILY
     Route: 048
     Dates: start: 20201231
  11. ONDANSETRON [Concomitant]
     Active Substance: ONDANSETRON
     Dosage: 8 MILLIGRAM, PRN Q8H
     Route: 048
     Dates: start: 20201229

REACTIONS (1)
  - Hyperglycaemia [Recovered/Resolved]

NARRATIVE: CASE EVENT DATE: 20210824
